FAERS Safety Report 12867606 (Version 1)
Quarter: 2016Q4

REPORT INFORMATION
  Report Type: Spontaneous
  Country: TR (occurrence: TR)
  Receive Date: 20161020
  Receipt Date: 20161020
  Transmission Date: 20170207
  Serious: Yes (Hospitalization)
  Sender: FDA-Public Use
  Company Number: TR-BAXALTA-2016BLT007439

PATIENT
  Age: 2 Year
  Sex: Male
  Weight: 9 kg

DRUGS (1)
  1. KIOVIG [Suspect]
     Active Substance: HUMAN IMMUNOGLOBULIN G
     Indication: IMMUNODEFICIENCY
     Dosage: UNK
     Route: 042
     Dates: start: 20160926, end: 20160926

REACTIONS (3)
  - Tremor [Recovering/Resolving]
  - Pyrexia [Recovering/Resolving]
  - Cyanosis [Recovering/Resolving]

NARRATIVE: CASE EVENT DATE: 20160926
